FAERS Safety Report 6176293-X (Version None)
Quarter: 2009Q2

REPORT INFORMATION
  Report Type: 
  Country: None (occurrence: None)
  Receive Date: 20090501
  Receipt Date: 20090415
  Transmission Date: 20091009
  Serious: Yes (Other)
  Sender: FDA-Public Use
  Company Number: US-ROCHE-627794

PATIENT

DRUGS (1)
  1. XELODA [Suspect]
     Indication: BREAST CANCER
     Dosage: DOSING REGIMEN: 2600 MG/DAY X 2 WEEKS AT A TIME
     Route: 065

REACTIONS (1)
  - CHOROIDAL DETACHMENT [None]
